FAERS Safety Report 6417779-X (Version None)
Quarter: 2009Q4

REPORT INFORMATION
  Report Type: 
  Country: None (occurrence: None)
  Receive Date: 20091027
  Receipt Date: 20091027
  Transmission Date: 20100525
  Serious: Yes (Life-Threatening, Hospitalization)
  Sender: FDA-Public Use
  Company Number: None

PATIENT
  Age: 59 Year
  Sex: Male
  Weight: 90 kg

DRUGS (6)
  1. NAPROXEN [Suspect]
     Indication: OSTEOARTHRITIS
     Dosage: 500 MG PO TID  AT HOME
     Route: 048
  2. DILTIAZEM [Concomitant]
  3. ENALAPRIL [Concomitant]
  4. FLUOXETINE [Concomitant]
  5. HYDROCHLOROTHIAZIDE [Concomitant]
  6. LOVASTATIN [Concomitant]

REACTIONS (7)
  - BLOOD PRESSURE DIASTOLIC INCREASED [None]
  - CREATININE RENAL CLEARANCE DECREASED [None]
  - DEPRESSED LEVEL OF CONSCIOUSNESS [None]
  - HAEMOGLOBIN DECREASED [None]
  - INCORRECT DOSE ADMINISTERED [None]
  - LARGE INTESTINAL HAEMORRHAGE [None]
  - TREATMENT NONCOMPLIANCE [None]
